FAERS Safety Report 6240394-8 (Version None)
Quarter: 2009Q2

REPORT INFORMATION
  Report Type: 
  Country: None (occurrence: None)
  Receive Date: 20090623
  Receipt Date: 20080618
  Transmission Date: 20091009
  Serious: No
  Sender: FDA-Public Use
  Company Number: US-ASTRAZENECA-2008UW12245

PATIENT
  Age: 66 Year
  Sex: Male

DRUGS (6)
  1. PULMICORT FLEXHALER [Suspect]
     Indication: DYSPNOEA
     Dosage: 180 UG 2 PUFFS
     Route: 055
     Dates: start: 20080617
  2. INSULIN [Concomitant]
  3. BENICAR [Concomitant]
  4. LOPRESSOR [Concomitant]
  5. PLENDIL [Concomitant]
  6. PROVER [Concomitant]

REACTIONS (1)
  - BLOOD GLUCOSE INCREASED [None]
